FAERS Safety Report 10149252 (Version 1)
Quarter: 2014Q2

REPORT INFORMATION
  Report Type: Report from Study
  Country: NL (occurrence: NL)
  Receive Date: 20140502
  Receipt Date: 20140502
  Transmission Date: 20141212
  Serious: Yes (Hospitalization)
  Sender: FDA-Public Use
  Company Number: NL-ROCHE-1388994

PATIENT
  Age: 70 Year
  Sex: Male
  Weight: 71 kg

DRUGS (5)
  1. BEVACIZUMAB [Suspect]
     Indication: GASTRIC CANCER
     Dosage: CUMMULATIVE DOSE 1064?DATE OF LAST DOSE PRIOR TO SAE 18/SEP/2013
     Route: 042
     Dates: start: 20130828, end: 20130918
  2. CAPECITABINE [Suspect]
     Indication: GASTRIC CANCER
     Dosage: CUMMULATIVE DOSE 92400 MG?DATE OF LAST DOSE PRIOR TO SAE 18/SEP/2013
     Route: 048
     Dates: start: 20130828, end: 20130918
  3. TRASTUZUMAB [Suspect]
     Indication: GASTRIC CANCER
     Dosage: CUMMULATIVE DOSE 994 MG?DATE OF LAST DOSE PRIOR TO SAE 18/SEP/2013
     Route: 042
     Dates: start: 20130828
  4. DOCETAXEL [Suspect]
     Indication: GASTRIC CANCER
     Dosage: CUMMULATIVE DOSE 200 MG?DATE OF LAST DOSE PRIOR TO SAE 18/SEP/2013
     Route: 042
     Dates: start: 20130828
  5. OXALIPLATIN [Suspect]
     Indication: GASTRIC CANCER
     Dosage: CUMMULATIVE DOSE 380 MG.?DATE OF LAST DOSE PRIOR TO SAE 18/SEP/2013
     Route: 042
     Dates: start: 20130828

REACTIONS (1)
  - Pulmonary embolism [Recovered/Resolved with Sequelae]
